FAERS Safety Report 8676629 (Version 3)
Quarter: 2014Q3

REPORT INFORMATION
  Report Type: Report from Study
  Country: CA (occurrence: CA)
  Receive Date: 20120913
  Receipt Date: 20140829
  Transmission Date: 20150326
  Serious: Yes (Disabling, Other)
  Sender: FDA-Public Use
  Company Number: CA-MSD-1006USA03048

PATIENT
  Age: 82 Year
  Sex: Female
  Weight: 52 kg

DRUGS (9)
  1. TRAZODONE HYDROCHLORIDE. [Concomitant]
     Active Substance: TRAZODONE HYDROCHLORIDE
     Dosage: TOTAL DAILY DOSE 100 MG. HS
     Route: 048
     Dates: start: 20000101
  2. CITALOPRAM [Concomitant]
     Active Substance: CITALOPRAM HYDROBROMIDE
     Dosage: TOTAL DAILY DOSE 20 MG. OD
     Route: 048
     Dates: start: 20000101
  3. ASPIRIN. [Concomitant]
     Active Substance: ASPIRIN
     Dosage: TOTAL DAILY DOSE 81 MG. OD
     Route: 048
     Dates: start: 20081106
  4. LEVOTHYROXINE SODIUM. [Concomitant]
     Active Substance: LEVOTHYROXINE SODIUM
     Dosage: TOTAL DAILY DOSE 75 MICROGRAM OD
     Route: 048
     Dates: start: 19800101
  5. LORAZEPAM. [Concomitant]
     Active Substance: LORAZEPAM
     Dosage: TOTAL DAILY DOSE 1 MG. HS
     Route: 048
     Dates: start: 20000101
  6. SIMVASTATIN. [Suspect]
     Active Substance: SIMVASTATIN
     Indication: ACUTE CORONARY SYNDROME
     Dosage: 40 MG, QD
     Route: 048
     Dates: start: 20081106
  7. RAMIPRIL. [Concomitant]
     Active Substance: RAMIPRIL
     Dosage: TOTAL DAILY DOSE 2.5 MG. OD
     Route: 048
     Dates: start: 20081106
  8. FOLIC ACID. [Concomitant]
     Active Substance: FOLIC ACID
     Dosage: TOTAL DAILY DOSE 5 MG. OD
     Route: 048
     Dates: start: 20000101
  9. METOPROLOL [Concomitant]
     Active Substance: METOPROLOL
     Dosage: TOTAL DAILY DOSE 50 MG. BID
     Route: 048
     Dates: start: 20081106

REACTIONS (1)
  - Dysphagia [Recovered/Resolved]

NARRATIVE: CASE EVENT DATE: 20091002
